FAERS Safety Report 8373237-7 (Version None)
Quarter: 2012Q2

REPORT INFORMATION
  Report Type: 
  Country: None (occurrence: None)
  Receive Date: 20120521
  Receipt Date: 20120515
  Transmission Date: 20120825
  Serious: Yes (Hospitalization, Other)
  Sender: FDA-Public Use
  Company Number: US-BAYER-2012-049121

PATIENT
  Age: 27 Year
  Sex: Female

DRUGS (5)
  1. METFORMIN HCL [Concomitant]
     Dosage: 500 MG, UNK
     Dates: start: 20041102
  2. OXYCODONE HCL AND ACETAMINOPHEN [Concomitant]
     Dosage: 5/325
     Dates: start: 20041114
  3. FERROUS SULFATE TAB [Concomitant]
     Dosage: 325 MG, QD
     Dates: start: 20041223
  4. CIPROFLOXACIN HCL [Concomitant]
     Dosage: 500 MG, UNK
     Dates: start: 20041102
  5. YASMIN [Suspect]
     Indication: MENSTRUATION IRREGULAR

REACTIONS (2)
  - CHOLECYSTITIS CHRONIC [None]
  - PULMONARY EMBOLISM [None]
